FAERS Safety Report 23668973 (Version 2)
Quarter: 2024Q2

REPORT INFORMATION
  Report Type: Spontaneous
  Country: CA (occurrence: CA)
  Receive Date: 20240325
  Receipt Date: 20240507
  Transmission Date: 20240716
  Serious: Yes (Other)
  Sender: FDA-Public Use
  Company Number: CA-PFIZER INC-202400039538

PATIENT
  Age: 71 Year
  Sex: Male
  Weight: 77 kg

DRUGS (2)
  1. RUXIENCE [Suspect]
     Active Substance: RITUXIMAB-PVVR
     Indication: Granulomatosis with polyangiitis
     Dosage: 750 MG, WEEKLY (FOR 4 DOSES) (750MG, FIRST DOSE)
     Route: 042
     Dates: start: 20240320
  2. RUXIENCE [Suspect]
     Active Substance: RITUXIMAB-PVVR
     Dosage: 750 MG, WEEKLY (FOR 4 DOSES) (750MG, FIRST DOSE)
     Route: 042
     Dates: start: 20240320

REACTIONS (7)
  - Headache [Recovered/Resolved]
  - Pruritus [Recovered/Resolved]
  - Chills [Recovered/Resolved]
  - Tremor [Recovered/Resolved]
  - Weight increased [Unknown]
  - Off label use [Unknown]
  - Product use issue [Unknown]

NARRATIVE: CASE EVENT DATE: 20240320
